FAERS Safety Report 25792616 (Version 2)
Quarter: 2025Q4

REPORT INFORMATION
  Report Type: Report from Study
  Country: US (occurrence: US)
  Receive Date: 20250911
  Receipt Date: 20251003
  Transmission Date: 20260118
  Serious: No
  Sender: MALLINCKRODT
  Company Number: US-MALLINCKRODT-MNK202505182

PATIENT
  Age: 77 Year
  Sex: Female

DRUGS (5)
  1. CORTICOTROPIN [Suspect]
     Active Substance: CORTICOTROPIN
     Indication: Nephrotic syndrome
     Dosage: 40 UNITS
     Route: 058
     Dates: start: 202507, end: 202507
  2. CORTICOTROPIN [Suspect]
     Active Substance: CORTICOTROPIN
     Indication: Nephrotic syndrome
     Dosage: 80 UNITS (DOSE INCREASED)
     Dates: start: 202508, end: 202508
  3. CORTICOTROPIN [Suspect]
     Active Substance: CORTICOTROPIN
     Dosage: 40 UNITS
     Route: 058
     Dates: start: 20250828, end: 2025
  4. CORTICOTROPIN [Suspect]
     Active Substance: CORTICOTROPIN
     Route: 058
     Dates: start: 202507, end: 202508
  5. OFEV [Concomitant]
     Active Substance: NINTEDANIB
     Dosage: UNKNOWN

REACTIONS (4)
  - Protein urine [Unknown]
  - Laboratory test abnormal [Unknown]
  - Urine abnormality [Unknown]
  - Underdose [Unknown]

NARRATIVE: CASE EVENT DATE: 20250101
